FAERS Safety Report 6229380-1 (Version None)
Quarter: 2009Q2

REPORT INFORMATION
  Report Type: 
  Country: None (occurrence: None)
  Receive Date: 20090615
  Receipt Date: 20090602
  Transmission Date: 20091009
  Serious: Yes (Other)
  Sender: FDA-Public Use
  Company Number: B0577424A

PATIENT
  Sex: Male

DRUGS (1)
  1. NIQUITIN 2MG [Suspect]
     Dosage: 15LOZ PER DAY
     Route: 002

REACTIONS (2)
  - INTENTIONAL DRUG MISUSE [None]
  - NICOTINE DEPENDENCE [None]
